FAERS Safety Report 23201348 (Version 2)
Quarter: 2023Q4

REPORT INFORMATION
  Report Type: Other
  Country: US (occurrence: US)
  Receive Date: 20231118
  Receipt Date: 20231118
  Transmission Date: 20240109
  Serious: Yes (Other)
  Sender: FDA-Public Use
  Company Number: US-TRAVERE-2023TVT00566

PATIENT
  Age: 29 Year
  Sex: Male

DRUGS (21)
  1. FILSPARI [Suspect]
     Active Substance: SPARSENTAN
     Indication: IgA nephropathy
     Route: 048
  2. FILSPARI [Suspect]
     Active Substance: SPARSENTAN
     Route: 048
     Dates: start: 20230912
  3. EFFEXOR XR [Concomitant]
     Active Substance: VENLAFAXINE HYDROCHLORIDE
  4. BUPROPION HYDROCHLORIDE [Concomitant]
     Active Substance: BUPROPION HYDROCHLORIDE
  5. PATADAY [Concomitant]
     Active Substance: OLOPATADINE HYDROCHLORIDE
  6. MUCINEX [Concomitant]
     Active Substance: GUAIFENESIN
  7. CARBOXYMETHYLCELLULOSE SODIUM [Concomitant]
     Active Substance: CARBOXYMETHYLCELLULOSE SODIUM
  8. FLONASE ALLERGY RELIEF [Concomitant]
     Active Substance: FLUTICASONE PROPIONATE
  9. OLOPATADINE HYDROCHLORIDE [Concomitant]
     Active Substance: OLOPATADINE HYDROCHLORIDE
  10. ACETAMINOPHEN [Concomitant]
     Active Substance: ACETAMINOPHEN
  11. LIDOCAINE 4% [Concomitant]
     Active Substance: LIDOCAINE
  12. OMEPRAZOLE [Concomitant]
     Active Substance: OMEPRAZOLE
  13. Vitamin D-400 [Concomitant]
  14. MEGESTROL ACETATE [Concomitant]
     Active Substance: MEGESTROL ACETATE
  15. MIRALAX [Concomitant]
     Active Substance: POLYETHYLENE GLYCOL 3350
  16. MELATONIN [Concomitant]
     Active Substance: MELATONIN
  17. LOSARTAN POTASSIUM [Concomitant]
     Active Substance: LOSARTAN POTASSIUM
  18. OXYBUTYNIN CHLORIDE [Concomitant]
     Active Substance: OXYBUTYNIN CHLORIDE
  19. VIAGRA [Concomitant]
     Active Substance: SILDENAFIL CITRATE
  20. TYLENOL [Concomitant]
     Active Substance: ACETAMINOPHEN
  21. PRAZOSIN [Concomitant]
     Active Substance: PRAZOSIN

REACTIONS (5)
  - Pancytopenia [Unknown]
  - Hypoaesthesia [None]
  - Paraesthesia [None]
  - Blood urine present [None]
  - Drug ineffective [Unknown]
